FAERS Safety Report 9840824 (Version 1)
Quarter: 2013Q4

REPORT INFORMATION
  Report Type: Spontaneous
  Country: US (occurrence: None)
  Receive Date: 20131223
  Receipt Date: 20131223
  Transmission Date: 20140711
  Serious: Yes (Other)
  Sender: FDA-Public Use
  Company Number: 219868LEO

PATIENT
  Age: 55 Year
  Sex: Male

DRUGS (2)
  1. PICATO [Suspect]
     Indication: ACTINIC KERATOSIS
     Dosage: ONCE DAILY FOR 3 DAYS, TOPICAL
     Route: 061
  2. ATENOLOL (ATENOLOL) [Concomitant]

REACTIONS (2)
  - Application site irritation [None]
  - Application site scab [None]
